FAERS Safety Report 13544231 (Version 2)
Quarter: 2017Q2

REPORT INFORMATION
  Report Type: Spontaneous
  Country: AR (occurrence: AR)
  Receive Date: 20170515
  Receipt Date: 20170602
  Transmission Date: 20170830
  Serious: Yes (Other)
  Sender: FDA-Public Use
  Company Number: AR-009507513-1705ESP006059

PATIENT
  Age: 77 Year
  Sex: Male

DRUGS (1)
  1. POSACONAZOLE [Suspect]
     Active Substance: POSACONAZOLE
     Indication: MUCORMYCOSIS
     Route: 048

REACTIONS (4)
  - Cardiac arrest [Unknown]
  - Ventricular arrhythmia [Unknown]
  - Electrocardiogram QT prolonged [Unknown]
  - Haemodynamic instability [Unknown]
